APPROVED DRUG PRODUCT: FLUOXETINE HYDROCHLORIDE
Active Ingredient: FLUOXETINE HYDROCHLORIDE
Strength: EQ 60MG BASE
Dosage Form/Route: TABLET;ORAL
Application: A212191 | Product #001
Applicant: G AND W LABORATORIES INC
Approved: Jul 5, 2019 | RLD: No | RS: No | Type: DISCN